FAERS Safety Report 8153417-6 (Version None)
Quarter: 2012Q1

REPORT INFORMATION
  Report Type: 
  Country: None (occurrence: None)
  Receive Date: 20120221
  Receipt Date: 20120210
  Transmission Date: 20120608
  Serious: Yes (Death)
  Sender: FDA-Public Use
  Company Number: DE-ROCHE-1022996

PATIENT
  Sex: Male
  Weight: 75.6 kg

DRUGS (8)
  1. CALCIUM [Concomitant]
     Route: 048
     Dates: start: 20080201
  2. MYCOPHENOLATE MOFETIL [Concomitant]
     Indication: PEMPHIGUS
     Route: 048
  3. GLUCOPHAGE [Concomitant]
     Indication: DIABETES MELLITUS
     Route: 048
  4. INSULIN [Concomitant]
     Indication: DIABETES MELLITUS
  5. MABTHERA [Suspect]
     Indication: PEMPHIGUS
     Dosage: DAY 4 AND DAY 24
     Route: 042
     Dates: start: 20080222, end: 20080314
  6. NEXIUM [Concomitant]
     Indication: PEMPHIGUS
     Route: 048
  7. ERGOCALCIFEROL [Concomitant]
     Dosage: DOSE: 1000 IE
     Route: 048
  8. HYDROCORTISONE [Concomitant]
     Indication: PEMPHIGUS
     Route: 048
     Dates: start: 20080329

REACTIONS (1)
  - RECTAL CANCER [None]
